FAERS Safety Report 15399037 (Version 1)
Quarter: 2018Q3

REPORT INFORMATION
  Report Type: Spontaneous
  Country: US (occurrence: US)
  Receive Date: 20180918
  Receipt Date: 20180918
  Transmission Date: 20181010
  Serious: No
  Sender: FDA-Public Use
  Company Number: US-BRAINTREE LABORATORIES-180122

PATIENT
  Age: 57 Year
  Sex: Female
  Weight: 81.19 kg

DRUGS (1)
  1. SUPREP BOWEL PREP [Suspect]
     Active Substance: MAGNESIUM SULFATE\POTASSIUM SULFATE\SODIUM SULFATE
     Indication: COLONOSCOPY
     Dosage: 1 X 6 OZ. BOTTLE
     Route: 048
     Dates: start: 20180225, end: 20180225

REACTIONS (8)
  - Abdominal discomfort [None]
  - Vomiting [None]
  - Wrong technique in product usage process [None]
  - Retching [None]
  - Drug ineffective [None]
  - Abdominal pain [None]
  - Gastrointestinal sounds abnormal [None]
  - Hyperhidrosis [None]

NARRATIVE: CASE EVENT DATE: 20180225
